FAERS Safety Report 10334585 (Version 2)
Quarter: 2014Q3

REPORT INFORMATION
  Report Type: Spontaneous
  Country: US (occurrence: US)
  Receive Date: 20140723
  Receipt Date: 20140723
  Transmission Date: 20150326
  Serious: No
  Sender: FDA-Public Use
  Company Number: US-UNITED THERAPEUTICS-UTC-045799

PATIENT
  Sex: Female
  Weight: 77.11 kg

DRUGS (3)
  1. REMODULIN [Suspect]
     Active Substance: TREPROSTINIL
     Dosage: 0.014 UG/KG/MIN
     Route: 058
     Dates: start: 20130201
  2. LETAIRIS [Concomitant]
     Active Substance: AMBRISENTAN
  3. REVATIO [Concomitant]
     Active Substance: SILDENAFIL CITRATE

REACTIONS (4)
  - Dizziness [Unknown]
  - Device malfunction [Unknown]
  - Presyncope [Unknown]
  - Drug dose omission [Unknown]
